FAERS Safety Report 24683326 (Version 1)
Quarter: 2024Q4

REPORT INFORMATION
  Report Type: Report from Study
  Country: ZA (occurrence: ZA)
  Receive Date: 20241201
  Receipt Date: 20241201
  Transmission Date: 20250115
  Serious: Yes (Hospitalization, Other)
  Sender: ABBVIE
  Company Number: ZA-ABBVIE-5905241

PATIENT
  Age: 25 Year
  Sex: Female

DRUGS (1)
  1. HUMIRA [Suspect]
     Active Substance: ADALIMUMAB
     Indication: Rheumatoid arthritis
     Route: 058
     Dates: start: 20240408

REACTIONS (8)
  - Conduction disorder [Unknown]
  - Surgical failure [Unknown]
  - Myocardial fibrosis [Unknown]
  - Cardiomegaly [Unknown]
  - Cardiac pacemaker insertion [Unknown]
  - Psoriasis [Not Recovered/Not Resolved]
  - Inflammation [Not Recovered/Not Resolved]
  - Cardiac ablation [Unknown]

NARRATIVE: CASE EVENT DATE: 20240101
